FAERS Safety Report 25274290 (Version 3)
Quarter: 2025Q2

REPORT INFORMATION
  Report Type: Report from Study
  Country: PH (occurrence: PH)
  Receive Date: 20250506
  Receipt Date: 20250609
  Transmission Date: 20250716
  Serious: Yes (Other)
  Sender: PFIZER
  Company Number: PH-TAKEDA-2025TUS041472

PATIENT
  Age: 18 Year
  Sex: Male

DRUGS (1)
  1. ADCETRIS [Suspect]
     Active Substance: BRENTUXIMAB VEDOTIN
     Indication: Hodgkin^s disease refractory
     Dosage: 150 MG, EVERY (Q) 3 WEEKS
     Route: 042

REACTIONS (2)
  - Alanine aminotransferase increased [Recovered/Resolved]
  - Aspartate aminotransferase increased [Recovered/Resolved]
